FAERS Safety Report 6603353-9 (Version None)
Quarter: 2010Q1

REPORT INFORMATION
  Report Type: 
  Country: None (occurrence: None)
  Receive Date: 20100226
  Receipt Date: 20090219
  Transmission Date: 20100710
  Serious: No
  Sender: FDA-Public Use
  Company Number: A0770073A

PATIENT
  Sex: Male

DRUGS (1)
  1. VALTREX [Suspect]
     Dosage: 500MG PER DAY
     Route: 048
     Dates: start: 20080101

REACTIONS (1)
  - ORAL HERPES [None]
